FAERS Safety Report 10636891 (Version 1)
Quarter: 2014Q4

REPORT INFORMATION
  Report Type: Spontaneous
  Country: US (occurrence: US)
  Receive Date: 20141208
  Receipt Date: 20141208
  Transmission Date: 20150529
  Serious: No
  Sender: FDA-Public Use
  Company Number: US-BIOGENIDEC-2013BI070057

PATIENT
  Age: 61 Year
  Sex: Female

DRUGS (19)
  1. BAYER CHILD ASA [Concomitant]
  2. VITAMIN C [Concomitant]
     Active Substance: ASCORBIC ACID
  3. FISH OIL [Concomitant]
     Active Substance: FISH OIL
  4. ASPIRIN. [Concomitant]
     Active Substance: ASPIRIN
  5. CARBAMAZEPINE. [Concomitant]
     Active Substance: CARBAMAZEPINE
  6. DONEPAZIL [Concomitant]
  7. TRAMADOL [Concomitant]
     Active Substance: TRAMADOL
  8. IRON [Concomitant]
     Active Substance: IRON
  9. LOSARTAN [Concomitant]
     Active Substance: LOSARTAN
  10. TYLENOL ARTHRITIS PAIN [Concomitant]
     Active Substance: ACETAMINOPHEN
  11. TECFIDERA [Suspect]
     Active Substance: DIMETHYL FUMARATE
     Indication: MULTIPLE SCLEROSIS
     Route: 048
  12. HCTZ [Concomitant]
     Active Substance: HYDROCHLOROTHIAZIDE
  13. TECFIDERA [Suspect]
     Active Substance: DIMETHYL FUMARATE
     Indication: MULTIPLE SCLEROSIS
     Route: 048
  14. CALTRATE WITH VITAMIN D [Concomitant]
     Active Substance: CALCIUM CARBONATE\VITAMIN D
  15. IMIPRAMINE [Concomitant]
     Active Substance: IMIPRAMINE
  16. TECFIDERA [Suspect]
     Active Substance: DIMETHYL FUMARATE
     Indication: MULTIPLE SCLEROSIS
     Route: 048
  17. VITAMIN D3 [Concomitant]
     Active Substance: CHOLECALCIFEROL
  18. METAMUCIL [Concomitant]
     Active Substance: PLANTAGO SEED
  19. SYSTANE ULTRA [Concomitant]
     Active Substance: POLYETHYLENE GLYCOL 400\PROPYLENE GLYCOL

REACTIONS (5)
  - Abdominal pain upper [Unknown]
  - Prescribed underdose [Unknown]
  - Nausea [Recovered/Resolved]
  - Diarrhoea [Unknown]
  - Thrombosis [Recovered/Resolved]

NARRATIVE: CASE EVENT DATE: 20130704
